FAERS Safety Report 17148428 (Version 3)
Quarter: 2020Q3

REPORT INFORMATION
  Report Type: Report from Study
  Country: JP (occurrence: JP)
  Receive Date: 20191212
  Receipt Date: 20200918
  Transmission Date: 20201102
  Serious: Yes (Death)
  Sender: FDA-Public Use
  Company Number: JP-AMGEN-JPNCT2019084850

PATIENT
  Age: 58 Year
  Sex: Male

DRUGS (18)
  1. DARBEPOETIN ALFA [Suspect]
     Active Substance: DARBEPOETIN ALFA
     Dosage: 240 MICROGRAM
     Route: 058
     Dates: start: 20190723, end: 20190723
  2. DARBEPOETIN ALFA [Suspect]
     Active Substance: DARBEPOETIN ALFA
     Dosage: 240 MICROGRAM
     Route: 058
     Dates: start: 20190917, end: 20190917
  3. CANDESARTAN [CANDESARTAN CILEXETIL] [Concomitant]
     Active Substance: CANDESARTAN CILEXETIL
     Indication: HYPERTENSION
     Dosage: 4 MILLIGRAM
     Route: 048
     Dates: end: 20191119
  4. NEORAL [Concomitant]
     Active Substance: CYCLOSPORINE
     Indication: CHRONIC KIDNEY DISEASE
     Dosage: 300 MILLIGRAM
     Route: 048
     Dates: end: 20191119
  5. DARBEPOETIN ALFA [Suspect]
     Active Substance: DARBEPOETIN ALFA
     Dosage: 240 MICROGRAM, QWK
     Route: 058
     Dates: start: 20180109, end: 20180424
  6. DARBEPOETIN ALFA [Suspect]
     Active Substance: DARBEPOETIN ALFA
     Dosage: 240 MICROGRAM
     Route: 058
     Dates: start: 20180911, end: 20180911
  7. DARBEPOETIN ALFA [Suspect]
     Active Substance: DARBEPOETIN ALFA
     Dosage: 240 MICROGRAM
     Route: 058
     Dates: start: 20191023, end: 20191023
  8. SARPOGRELATE HYDROCHLORIDE [Concomitant]
     Active Substance: SARPOGRELATE HYDROCHLORIDE
     Indication: CHRONIC KIDNEY DISEASE
     Dosage: 300 MILLIGRAM
     Route: 048
     Dates: end: 20191119
  9. DARBEPOETIN ALFA [Suspect]
     Active Substance: DARBEPOETIN ALFA
     Dosage: 240 MICROGRAM, Q2WK
     Route: 058
     Dates: start: 20190514, end: 20190625
  10. DARBEPOETIN ALFA [Suspect]
     Active Substance: DARBEPOETIN ALFA
     Indication: MYELODYSPLASTIC SYNDROME
     Dosage: 240 MICROGRAM, QWK
     Route: 058
     Dates: start: 20170425, end: 20171226
  11. DARBEPOETIN ALFA [Suspect]
     Active Substance: DARBEPOETIN ALFA
     Dosage: 240 MICROGRAM
     Route: 058
     Dates: start: 20190129, end: 20190129
  12. NIVADIL [Concomitant]
     Active Substance: NILVADIPINE
     Indication: HYPERTENSION
     Dosage: 8 MILLIGRAM
     Route: 048
     Dates: end: 20191119
  13. DARBEPOETIN ALFA [Suspect]
     Active Substance: DARBEPOETIN ALFA
     Dosage: 240 MICROGRAM, Q3WK
     Route: 058
     Dates: start: 20180515, end: 20180608
  14. LAC?B [Concomitant]
     Active Substance: BIFIDOBACTERIUM SPP.
     Indication: CHRONIC KIDNEY DISEASE
     Dosage: 2 GRAM
     Route: 048
     Dates: end: 20191119
  15. DARBEPOETIN ALFA [Suspect]
     Active Substance: DARBEPOETIN ALFA
     Dosage: 240 MICROGRAM, Q4WK
     Route: 058
     Dates: start: 20181127, end: 20181225
  16. DARBEPOETIN ALFA [Suspect]
     Active Substance: DARBEPOETIN ALFA
     Dosage: 240 MICROGRAM, QWK
     Route: 058
     Dates: start: 20190409, end: 20190422
  17. DARBEPOETIN ALFA [Suspect]
     Active Substance: DARBEPOETIN ALFA
     Dosage: 240 MICROGRAM, Q4WK
     Route: 058
     Dates: start: 20180703, end: 20180828
  18. PREDONINE [Concomitant]
     Active Substance: PREDNISOLONE
     Indication: CHRONIC KIDNEY DISEASE
     Dosage: 5 MILLIGRAM
     Route: 048
     Dates: end: 20191119

REACTIONS (7)
  - C-reactive protein increased [Fatal]
  - Basal cell carcinoma [Fatal]
  - Transformation to acute myeloid leukaemia [Fatal]
  - Lung neoplasm malignant [Fatal]
  - Sepsis [Fatal]
  - Anaemia [Not Recovered/Not Resolved]
  - Eosinophil count increased [Not Recovered/Not Resolved]

NARRATIVE: CASE EVENT DATE: 20180911
